FAERS Safety Report 7786693-X (Version None)
Quarter: 2011Q3

REPORT INFORMATION
  Report Type: 
  Country: None (occurrence: None)
  Receive Date: 20110929
  Receipt Date: 20110928
  Transmission Date: 20111222
  Serious: Yes (Other)
  Sender: FDA-Public Use
  Company Number: US-PFIZER INC-2011231825

PATIENT
  Sex: Female
  Weight: 56.689 kg

DRUGS (1)
  1. CHANTIX [Suspect]
     Indication: SMOKING CESSATION THERAPY
     Dosage: 0.5 MG, 1X/DAY
     Route: 048
     Dates: start: 20110926, end: 20110927

REACTIONS (5)
  - DIZZINESS [None]
  - THINKING ABNORMAL [None]
  - CHEST PAIN [None]
  - FEELING ABNORMAL [None]
  - ANXIETY [None]
